FAERS Safety Report 14538695 (Version 1)
Quarter: 2018Q1

REPORT INFORMATION
  Report Type: Spontaneous
  Country: US (occurrence: US)
  Receive Date: 20180216
  Receipt Date: 20180216
  Transmission Date: 20180509
  Serious: Yes (Other)
  Sender: FDA-Public Use
  Company Number: US-ROCHE-2074803

PATIENT
  Age: 59 Year
  Sex: Female
  Weight: 87 kg

DRUGS (1)
  1. XOLAIR [Suspect]
     Active Substance: OMALIZUMAB
     Indication: ASTHMA
     Route: 058
     Dates: start: 20150805, end: 20180209

REACTIONS (1)
  - Choking sensation [Recovered/Resolved]

NARRATIVE: CASE EVENT DATE: 20180212
